FAERS Safety Report 6447808-9 (Version None)
Quarter: 2009Q4

REPORT INFORMATION
  Report Type: 
  Country: None (occurrence: None)
  Receive Date: 20091120
  Receipt Date: 20091013
  Transmission Date: 20100525
  Serious: No
  Sender: FDA-Public Use
  Company Number: A0801376A

PATIENT
  Age: 64 Year
  Sex: Male

DRUGS (6)
  1. VERAMYST [Suspect]
     Indication: POSTNASAL DRIP
     Dosage: 2SPR PER DAY
     Route: 045
     Dates: start: 20090722
  2. UNKNOWN MEDICATION [Concomitant]
  3. DIOVAN [Concomitant]
  4. BISOPROLOL [Concomitant]
  5. CARDURA [Concomitant]
  6. NORVASC [Concomitant]

REACTIONS (2)
  - BLOOD PRESSURE INCREASED [None]
  - PRODUCT QUALITY ISSUE [None]
